FAERS Safety Report 16094265 (Version 1)
Quarter: 2019Q1

REPORT INFORMATION
  Report Type: Spontaneous
  Country: IT (occurrence: IT)
  Receive Date: 20190320
  Receipt Date: 20190320
  Transmission Date: 20190418
  Serious: Yes (Other)
  Sender: FDA-Public Use
  Company Number: IT-ACCORD-113938

PATIENT
  Age: 66 Year
  Sex: Male

DRUGS (3)
  1. OXALIPLATIN. [Suspect]
     Active Substance: OXALIPLATIN
     Indication: ADENOCARCINOMA OF COLON
     Dosage: DAY 1, EVERY 14 DAYS, 6 CYCLES
     Route: 042
  2. LEUCOVORIN. [Suspect]
     Active Substance: LEUCOVORIN
     Indication: COLON CANCER METASTATIC
     Dosage: DAYS 1 AND 2, EVERY 14 DAYS, 6 CYCLES
     Route: 042
  3. FLUOROURACIL. [Suspect]
     Active Substance: FLUOROURACIL
     Indication: COLON CANCER METASTATIC
     Dosage: DAYS 1 AND 2, EVERY 14 DAYS, 6 CYCLE
     Route: 042

REACTIONS (1)
  - Pseudolymphoma [Recovered/Resolved]
